FAERS Safety Report 10268796 (Version 2)
Quarter: 2014Q4

REPORT INFORMATION
  Report Type: Spontaneous
  Country: US (occurrence: US)
  Receive Date: 20140630
  Receipt Date: 20141105
  Transmission Date: 20150528
  Serious: Yes (Hospitalization, Other)
  Sender: FDA-Public Use
  Company Number: US-GLAXOSMITHKLINE-A1078254A

PATIENT
  Age: 74 Year
  Sex: Male

DRUGS (21)
  1. AMIODARONE [Concomitant]
     Active Substance: AMIODARONE
  2. SPIRIVA [Concomitant]
     Active Substance: TIOTROPIUM BROMIDE MONOHYDRATE
  3. TERAZOSIN [Concomitant]
     Active Substance: TERAZOSIN\TERAZOSIN HYDROCHLORIDE
  4. ALLOPURINOL. [Concomitant]
     Active Substance: ALLOPURINOL
  5. ADVAIR DISKUS [Suspect]
     Active Substance: FLUTICASONE PROPIONATE\SALMETEROL XINAFOATE
     Indication: CHRONIC OBSTRUCTIVE PULMONARY DISEASE
     Dosage: 1 PUFF(S), BID
     Dates: start: 2004
  6. OXYGEN. [Concomitant]
     Active Substance: OXYGEN
  7. CARVEDILOL. [Concomitant]
     Active Substance: CARVEDILOL
  8. ASPIRIN. [Concomitant]
     Active Substance: ASPIRIN
  9. GABAPENTIN. [Concomitant]
     Active Substance: GABAPENTIN
  10. FLUTICASONE NASAL SPRAY [Concomitant]
     Active Substance: FLUTICASONE\FLUTICASONE PROPIONATE
  11. PROTONIX [Concomitant]
     Active Substance: PANTOPRAZOLE SODIUM
  12. RANEXA [Concomitant]
     Active Substance: RANOLAZINE
  13. CLONAZEPAM. [Concomitant]
     Active Substance: CLONAZEPAM
  14. MUCINEX DM [Concomitant]
     Active Substance: DEXTROMETHORPHAN HYDROBROMIDE\GUAIFENESIN
  15. VITAMIN D [Concomitant]
     Active Substance: CHOLECALCIFEROL
  16. IRON SUPPLEMENT [Concomitant]
     Active Substance: IRON
  17. MONTELUKAST [Concomitant]
     Active Substance: MONTELUKAST SODIUM
  18. ISOSORBIDE [Concomitant]
     Active Substance: ISOSORBIDE
  19. CLOPIDOGREL [Concomitant]
     Active Substance: CLOPIDOGREL BISULFATE
  20. HYDROCODONE [Concomitant]
     Active Substance: HYDROCODONE
  21. FUROSEMIDE. [Concomitant]
     Active Substance: FUROSEMIDE

REACTIONS (7)
  - Gastrooesophageal reflux disease [Unknown]
  - Coronary artery bypass [Unknown]
  - Dyskinesia [Unknown]
  - Gout [Unknown]
  - Dyspnoea [Unknown]
  - Diabetes mellitus [Unknown]
  - Neuropathy peripheral [Unknown]

NARRATIVE: CASE EVENT DATE: 2006
